FAERS Safety Report 13962142 (Version 2)
Quarter: 2017Q3

REPORT INFORMATION
  Report Type: Report from Study
  Country: US (occurrence: US)
  Receive Date: 20170912
  Receipt Date: 20170926
  Transmission Date: 20171128
  Serious: Yes (Death, Hospitalization, Other)
  Sender: FDA-Public Use
  Company Number: US-TAKEDA-2017MPI003569

PATIENT
  Age: 76 Year
  Sex: Female

DRUGS (1)
  1. IXAZOMIB [Suspect]
     Active Substance: IXAZOMIB
     Indication: PLASMA CELL MYELOMA
     Dosage: 4 MG, UNK
     Route: 048
     Dates: start: 20170414, end: 201706

REACTIONS (4)
  - Plasma cell myeloma [Fatal]
  - Diarrhoea [Recovered/Resolved]
  - Diverticulitis [Fatal]
  - Drug administration error [Recovered/Resolved]

NARRATIVE: CASE EVENT DATE: 20170414
